FAERS Safety Report 18676500 (Version 1)
Quarter: 2020Q4

REPORT INFORMATION
  Report Type: Spontaneous
  Country: US (occurrence: US)
  Receive Date: 20201229
  Receipt Date: 20201229
  Transmission Date: 20210114
  Serious: Yes (Death, Hospitalization, Other)
  Sender: FDA-Public Use
  Company Number: None

PATIENT
  Age: 84 Year
  Sex: Female
  Weight: 59.8 kg

DRUGS (2)
  1. REMDESIVIR. [Concomitant]
     Active Substance: REMDESIVIR
     Dates: start: 20201219, end: 20201223
  2. BARICITINIB. [Suspect]
     Active Substance: BARICITINIB
     Indication: COVID-19
     Route: 048
     Dates: start: 20201219, end: 20201221

REACTIONS (6)
  - Hypoxia [None]
  - Sinus bradycardia [None]
  - Intentional product use issue [None]
  - Hypotension [None]
  - Depressed level of consciousness [None]
  - Altered state of consciousness [None]

NARRATIVE: CASE EVENT DATE: 20201225
